FAERS Safety Report 5192099-2 (Version None)
Quarter: 2006Q4

REPORT INFORMATION
  Report Type: 
  Country: None (occurrence: None)
  Receive Date: 20061220
  Receipt Date: 20061205
  Transmission Date: 20070319
  Serious: Yes (Other)
  Sender: FDA-Public Use
  Company Number: US-2006-037973

PATIENT
  Age: 50 Year
  Sex: Female

DRUGS (2)
  1. BETASERON [Suspect]
     Indication: MULTIPLE SCLEROSIS
     Dosage: 8 MIU, EVERY 2D, SUBCUTANEOUS; SEE IMAGE
     Route: 058
     Dates: start: 20000111, end: 20060101
  2. BETASERON [Suspect]
     Indication: MULTIPLE SCLEROSIS
     Dosage: 8 MIU, EVERY 2D, SUBCUTANEOUS; SEE IMAGE
     Route: 058
     Dates: start: 20061205

REACTIONS (8)
  - ABASIA [None]
  - ABDOMINAL PAIN UPPER [None]
  - ECONOMIC PROBLEM [None]
  - HEART RATE INCREASED [None]
  - INCOHERENT [None]
  - POSTURE ABNORMAL [None]
  - SPEECH DISORDER [None]
  - TREATMENT NONCOMPLIANCE [None]
